FAERS Safety Report 23347092 (Version 3)
Quarter: 2024Q1

REPORT INFORMATION
  Report Type: Report from Study
  Country: CA (occurrence: CA)
  Receive Date: 20231228
  Receipt Date: 20240212
  Transmission Date: 20240409
  Serious: Yes (Death, Other)
  Sender: FDA-Public Use
  Company Number: CA-OTSUKA-2023_033656

PATIENT
  Age: 51 Year
  Sex: Female

DRUGS (1)
  1. ARIPIPRAZOLE [Suspect]
     Active Substance: ARIPIPRAZOLE
     Indication: Product used for unknown indication
     Dosage: 400 MG EVERY 4 WEEKS
     Route: 030

REACTIONS (3)
  - Death [Fatal]
  - Neoplasm malignant [Unknown]
  - Hospice care [Unknown]

NARRATIVE: CASE EVENT DATE: 20240126
